FAERS Safety Report 23054224 (Version 1)
Quarter: 2023Q4

REPORT INFORMATION
  Report Type: Spontaneous
  Country: US (occurrence: None)
  Receive Date: 20231010
  Receipt Date: 20231010
  Transmission Date: 20240110
  Serious: No
  Sender: FDA-Public Use
  Company Number: None

PATIENT
  Age: 38 Year
  Sex: Female
  Weight: 63.9 kg

DRUGS (1)
  1. SCOPOLAMINE TRANDERMAL SYSTEM [Suspect]
     Active Substance: SCOPOLAMINE
     Indication: Motion sickness
     Dates: start: 20231008, end: 20231009

REACTIONS (6)
  - Dizziness [None]
  - Balance disorder [None]
  - Vision blurred [None]
  - Pupil fixed [None]
  - Vertigo [None]
  - Decreased appetite [None]

NARRATIVE: CASE EVENT DATE: 20231009
